FAERS Safety Report 23229435 (Version 1)
Quarter: 2023Q4

REPORT INFORMATION
  Report Type: Spontaneous
  Country: US (occurrence: US)
  Receive Date: 20231127
  Receipt Date: 20231127
  Transmission Date: 20240109
  Serious: Yes (Hospitalization, Other)
  Sender: FDA-Public Use
  Company Number: US-drreddys-SPO/USA/23/0187066

PATIENT
  Age: 75 Year
  Sex: Male
  Weight: 106.59 kg

DRUGS (1)
  1. AMIODARONE [Suspect]
     Active Substance: AMIODARONE
     Indication: Atrial fibrillation

REACTIONS (5)
  - Cardiac failure [Recovering/Resolving]
  - Hyponatraemia [Recovering/Resolving]
  - Myxoedema [Recovering/Resolving]
  - Hypothyroidism [Recovering/Resolving]
  - Product use in unapproved indication [Unknown]
